FAERS Safety Report 6293629-X (Version None)
Quarter: 2009Q3

REPORT INFORMATION
  Report Type: 
  Country: None (occurrence: None)
  Receive Date: 20090729
  Receipt Date: 20090727
  Transmission Date: 20100115
  Serious: Yes (Life-Threatening, Hospitalization, Other)
  Sender: FDA-Public Use
  Company Number: GXKR2008DE10431

PATIENT
  Age: 52 Year
  Sex: Male
  Weight: 104 kg

DRUGS (7)
  1. PARACETAMOL (NGX) (PARACETAMOL) TABLET, 500MG [Suspect]
     Indication: BACK PAIN
     Dosage: 1 OR 2 TABLETS/DAILY, ORAL
     Route: 048
     Dates: start: 20080215, end: 20080222
  2. VOLTAREN [Suspect]
     Indication: BACK PAIN
     Dosage: 75 MG, QD, ORAL
     Route: 048
     Dates: start: 20080201, end: 20080205
  3. VOLTAREN [Suspect]
     Indication: BACK PAIN
     Dosage: 75 MG, QD, ORAL
     Route: 048
     Dates: start: 20080207, end: 20080212
  4. LEVOTHYROXINE SODIUM [Concomitant]
  5. LISINOPRIL AND HYDROCHLOROTHIAZIDE [Concomitant]
  6. LISINOPRIL [Concomitant]
  7. NEXIUM [Concomitant]

REACTIONS (1)
  - PANCREATITIS ACUTE [None]
